FAERS Safety Report 9849224 (Version 3)
Quarter: 2014Q1

REPORT INFORMATION
  Report Type: Spontaneous
  Country: JP (occurrence: JP)
  Receive Date: 20140128
  Receipt Date: 20140219
  Transmission Date: 20141002
  Serious: Yes (Life-Threatening, Hospitalization, Other)
  Sender: FDA-Public Use
  Company Number: PHHY2014JP009264

PATIENT
  Age: 60 Year
  Sex: Male

DRUGS (3)
  1. NEORAL [Suspect]
     Indication: RENAL TRANSPLANT
     Dosage: 25 MG, DAILY
     Route: 048
  2. BREDININ [Concomitant]
     Dosage: 100 MG, UNK
     Route: 048
  3. MEDROL [Concomitant]
     Dosage: 4 MG, UNK

REACTIONS (6)
  - Brain stem haemorrhage [Recovering/Resolving]
  - Infection [Recovering/Resolving]
  - Pyrexia [Unknown]
  - Kidney transplant rejection [Recovered/Resolved]
  - Drug ineffective [Unknown]
  - Oral administration complication [Unknown]
